FAERS Safety Report 8984354 (Version 1)
Quarter: 2012Q4

REPORT INFORMATION
  Report Type: 
  Country: US (occurrence: US)
  Receive Date: 20121226
  Receipt Date: 20121226
  Transmission Date: 20130627
  Serious: Yes (Hospitalization)
  Sender: FDA-Public Use
  Company Number: US-AMGEN-USASP2012067582

PATIENT
  Age: 89 Year
  Sex: Female

DRUGS (9)
  1. PROLIA [Suspect]
     Indication: OSTEOPOROSIS POSTMENOPAUSAL
     Dosage: UNK
     Dates: start: 201204
  2. FLECAINIDE [Concomitant]
     Dosage: UNK UNK, tid
  3. LOSARTAN [Concomitant]
     Dosage: UNK UNK, qd
  4. DILTIAZEM [Concomitant]
     Dosage: UNK UNK, qd
  5. DIGOXIN [Concomitant]
     Dosage: UNK UNK, qd
  6. TYLENOL PM [Concomitant]
     Indication: INSOMNIA
     Dosage: UNK UNK, prn
  7. CITRACAL [Concomitant]
     Dosage: UNK
  8. WARFARIN [Concomitant]
     Dosage: UNK
  9. MOVE FREE [Concomitant]
     Dosage: UNK

REACTIONS (5)
  - Non-cardiac chest pain [Not Recovered/Not Resolved]
  - Skin discolouration [Not Recovered/Not Resolved]
  - Skin atrophy [Not Recovered/Not Resolved]
  - Fall [Unknown]
  - Head injury [Unknown]
